FAERS Safety Report 22638380 (Version 1)
Quarter: 2023Q2

REPORT INFORMATION
  Report Type: Other
  Country: ES (occurrence: ES)
  Receive Date: 20230626
  Receipt Date: 20230626
  Transmission Date: 20230722
  Serious: Yes (Hospitalization)
  Sender: FDA-Public Use
  Company Number: ES-MODERNATX, INC.-MOD-2023-727689

PATIENT
  Age: 47 Year
  Sex: Male

DRUGS (4)
  1. RITUXIMAB [Suspect]
     Active Substance: RITUXIMAB
     Indication: B-cell lymphoma
     Dosage: 375 MILLIGRAM/SQ. METER BIMONTHLY
     Route: 065
  2. SPIKEVAX [Suspect]
     Active Substance: ELASOMERAN
     Indication: COVID-19
     Dosage: 1 DOSAGE FORM
     Route: 065
     Dates: start: 20211123
  3. SPIKEVAX [Suspect]
     Active Substance: ELASOMERAN
     Dosage: 1 DOSAGE FORM
     Route: 065
     Dates: start: 20210505
  4. SPIKEVAX [Suspect]
     Active Substance: ELASOMERAN
     Dosage: 1 DOSAGE FORM
     Route: 065
     Dates: start: 20210601

REACTIONS (3)
  - Thrombocytopenia [Unknown]
  - Neutropenia [Unknown]
  - COVID-19 [Recovering/Resolving]
